FAERS Safety Report 5714870-8 (Version None)
Quarter: 2008Q2

REPORT INFORMATION
  Report Type: 
  Country: None (occurrence: None)
  Receive Date: 20080423
  Receipt Date: 20070911
  Transmission Date: 20081010
  Serious: Yes (Other)
  Sender: FDA-Public Use
  Company Number: US-BAYER-US-2007-034162

PATIENT
  Age: 54 Year
  Sex: Female
  Weight: 66 kg

DRUGS (3)
  1. LEUKINE [Suspect]
     Indication: NEUTROPENIA
     Route: 058
     Dates: start: 20070314, end: 20070314
  2. SYNTHROID [Concomitant]
     Indication: HYPOTHYROIDISM
     Dosage: UNIT DOSE: 112 ?G
     Route: 048
  3. AQUAPHOR ANTIBIOTIC [Concomitant]
     Route: 061

REACTIONS (2)
  - DIZZINESS POSTURAL [None]
  - SYNCOPE [None]
